FAERS Safety Report 10012497 (Version 2)
Quarter: 2014Q1

REPORT INFORMATION
  Report Type: Report from Study
  Country: CL (occurrence: CL)
  Receive Date: 20140314
  Receipt Date: 20140314
  Transmission Date: 20141002
  Serious: Yes (Hospitalization, Other)
  Sender: FDA-Public Use
  Company Number: PHHY2014CL014142

PATIENT
  Sex: Female

DRUGS (1)
  1. TAREG D [Suspect]
     Indication: HYPERTENSION
     Dosage: 1 DF, (160/12,5 MG) DAILY

REACTIONS (9)
  - Asthmatic crisis [Unknown]
  - Asthma [Unknown]
  - Insulin resistance [Recovering/Resolving]
  - Hyperhidrosis [Unknown]
  - Dry skin [Unknown]
  - Vision blurred [Unknown]
  - Hypoaesthesia [Unknown]
  - Fatigue [Unknown]
  - Pruritus [Unknown]
